FAERS Safety Report 17274437 (Version 3)
Quarter: 2020Q1

REPORT INFORMATION
  Report Type: Spontaneous
  Country: DE (occurrence: DE)
  Receive Date: 20200115
  Receipt Date: 20200204
  Transmission Date: 20200409
  Serious: Yes (Life-Threatening, Other)
  Sender: FDA-Public Use
  Company Number: DE-MYLANLABS-2020M1004258

PATIENT
  Age: 59 Year
  Sex: Male
  Weight: 90.4 kg

DRUGS (4)
  1. INSULIN [Concomitant]
     Active Substance: INSULIN NOS
     Dosage: UNK
  2. COPAXONE [Suspect]
     Active Substance: GLATIRAMER ACETATE
     Indication: MULTIPLE SCLEROSIS
     Dosage: 40 MILLIGRAM, Q2D
     Route: 058
     Dates: end: 201909
  3. CLIFT (GLATIRAMER ACETATE) [Suspect]
     Active Substance: GLATIRAMER ACETATE
     Indication: MULTIPLE SCLEROSIS
     Dosage: 20 MG TAGLICH
     Route: 058
     Dates: start: 20190301, end: 20190918
  4. CLIFT (GLATIRAMER ACETATE) [Suspect]
     Active Substance: GLATIRAMER ACETATE
     Dosage: UNK
     Dates: start: 2019

REACTIONS (2)
  - Hypoglycaemia [Recovered/Resolved]
  - Blood glucose decreased [Unknown]

NARRATIVE: CASE EVENT DATE: 20190818
